FAERS Safety Report 5352096-0 (Version None)
Quarter: 2007Q2

REPORT INFORMATION
  Report Type: 
  Country: None (occurrence: None)
  Receive Date: 20070606
  Receipt Date: 20070530
  Transmission Date: 20071010
  Serious: Yes (Hospitalization)
  Sender: FDA-Public Use
  Company Number: 2007US001259

PATIENT
  Age: 57 Year
  Sex: Male

DRUGS (7)
  1. PROGRAF [Suspect]
     Indication: LICHEN SCLEROSUS
     Dosage: UNK, UNK, TOPICAL
     Route: 061
     Dates: start: 20070504, end: 20070507
  2. MESALAMINE [Concomitant]
  3. ACTONEL [Concomitant]
  4. ATACAND [Concomitant]
  5. ATIVAN [Concomitant]
  6. REMERON [Concomitant]
  7. PREMARIN [Concomitant]

REACTIONS (2)
  - ABDOMINAL PAIN [None]
  - DIARRHOEA HAEMORRHAGIC [None]
